FAERS Safety Report 5018273-3 (Version None)
Quarter: 2006Q2

REPORT INFORMATION
  Report Type: 
  Country: None (occurrence: None)
  Receive Date: 20060530
  Receipt Date: 20060517
  Transmission Date: 20061013
  Serious: Yes (Death, Hospitalization)
  Sender: FDA-Public Use
  Company Number: 2006059729

PATIENT
  Age: 54 Year
  Sex: Female
  Weight: 57 kg

DRUGS (7)
  1. IRINOTECAN HCL [Suspect]
     Indication: ILL-DEFINED DISORDER
     Dosage: INTRAVENOUS
     Route: 042
     Dates: start: 20060222, end: 20060224
  2. AVASTIN [Suspect]
     Indication: ILL-DEFINED DISORDER
     Dosage: INTRAVENOUS
     Route: 042
     Dates: start: 20060222, end: 20060224
  3. FLUOROURACIL [Suspect]
     Indication: ILL-DEFINED DISORDER
     Dosage: INTRAVENOUS
     Route: 042
     Dates: start: 20060222, end: 20060224
  4. MORPHINE SULFATE [Concomitant]
  5. OMEPRAZOLE [Concomitant]
  6. ZOLPIDEM TARTRATE [Concomitant]
  7. MACROGOL [Concomitant]

REACTIONS (23)
  - ABDOMINAL PAIN [None]
  - ANOREXIA [None]
  - ASPARTATE AMINOTRANSFERASE INCREASED [None]
  - BLOOD CREATININE INCREASED [None]
  - BLOOD CULTURE POSITIVE [None]
  - BLOOD SODIUM DECREASED [None]
  - DEHYDRATION [None]
  - DIARRHOEA [None]
  - DYSPHAGIA [None]
  - ENTERITIS INFECTIOUS [None]
  - ESCHERICHIA INFECTION [None]
  - FEBRILE BONE MARROW APLASIA [None]
  - GAMMA-GLUTAMYLTRANSFERASE INCREASED [None]
  - GASTROINTESTINAL NECROSIS [None]
  - HAEMOGLOBIN DECREASED [None]
  - ILL-DEFINED DISORDER [None]
  - MUCOSAL DISCOLOURATION [None]
  - NECROTISING COLITIS [None]
  - NEUTROPHIL COUNT DECREASED [None]
  - PLATELET COUNT DECREASED [None]
  - PSEUDOPOLYPOSIS [None]
  - SEPTIC SHOCK [None]
  - TACHYCARDIA [None]
